FAERS Safety Report 20826833 (Version 2)
Quarter: 2022Q2

REPORT INFORMATION
  Report Type: Spontaneous
  Country: AT (occurrence: AT)
  Receive Date: 20220513
  Receipt Date: 20220524
  Transmission Date: 20220721
  Serious: Yes (Hospitalization, Other)
  Sender: FDA-Public Use
  Company Number: AT-ROCHE-3081149

PATIENT
  Age: 80 Year
  Sex: Female

DRUGS (4)
  1. CARBOPLATIN [Suspect]
     Active Substance: CARBOPLATIN
     Indication: Small cell lung cancer
     Dosage: AUG2021 REINDUCT ION WITH CARBOPLATIN/ETOPOSIDE (WITHOUT TECENTRIQ)
     Route: 065
     Dates: start: 202108
  2. ETOPOSIDE [Suspect]
     Active Substance: ETOPOSIDE
     Indication: Small cell lung cancer
     Dosage: AUG2021 REINDUCT ION WITH CARBOPLATIN/ETOPOSIDE (WITHOUT TECENTRIQ)
     Route: 065
     Dates: start: 202108
  3. TECENTRIQ [Suspect]
     Active Substance: ATEZOLIZUMAB
     Indication: Small cell lung cancer
     Dosage: UNK
     Route: 065
     Dates: start: 202011
  4. TECENTRIQ [Suspect]
     Active Substance: ATEZOLIZUMAB
     Dosage: 1200 MG; 0.33/WEEK
     Route: 065
     Dates: start: 202102, end: 202108

REACTIONS (3)
  - Neoplasm progression [Unknown]
  - Pneumonia [Unknown]
  - Febrile neutropenia [Unknown]

NARRATIVE: CASE EVENT DATE: 20211101
